FAERS Safety Report 14778568 (Version 3)
Quarter: 2018Q3

REPORT INFORMATION
  Report Type: Spontaneous
  Country: US (occurrence: US)
  Receive Date: 20180419
  Receipt Date: 20180904
  Transmission Date: 20181010
  Serious: Yes (Hospitalization, Other)
  Sender: FDA-Public Use
  Company Number: US-AMGEN-USASP2018051191

PATIENT
  Age: 80 Year
  Sex: Female
  Weight: 49.4 kg

DRUGS (17)
  1. ALEVE [Concomitant]
     Active Substance: NAPROXEN SODIUM
     Dosage: 1 DF, AS NECESSARY
     Route: 048
  2. OSCAL 250+D [Concomitant]
     Dosage: 1 DF, BID
     Route: 048
  3. MULTIVITAMIN [Concomitant]
     Active Substance: VITAMINS
     Dosage: 1 DF, QD
     Route: 048
  4. ASPIRIN. [Concomitant]
     Active Substance: ASPIRIN
     Dosage: 81 MG, QD (150 TABLET)
     Route: 048
  5. PROLENSA [Concomitant]
     Active Substance: BROMFENAC SODIUM
     Dosage: 1 DF (0.07% DROP INTO THE LEFT EYE FOR 31 DAYS), QD
  6. NORVASC [Concomitant]
     Active Substance: AMLODIPINE BESYLATE
     Dosage: 5 MG, QD (TOTAL 30 TABLET)
     Route: 048
  7. PROLIA [Suspect]
     Active Substance: DENOSUMAB
     Indication: OSTEOPOROSIS POSTMENOPAUSAL
     Dosage: 60 MG, ONCE
     Route: 058
     Dates: start: 201709
  8. LIPITOR [Concomitant]
     Active Substance: ATORVASTATIN CALCIUM
     Dosage: 20 MG, QD (90 TABLET)
     Route: 048
  9. LOTEMAX [Concomitant]
     Active Substance: LOTEPREDNOL ETABONATE
     Dosage: 1 DF, BID
  10. MAGNESIUM [Concomitant]
     Active Substance: MAGNESIUM
     Dosage: UNK
     Route: 048
  11. LOPRESSOR [Concomitant]
     Active Substance: METOPROLOL TARTRATE
  12. NORVASC [Concomitant]
     Active Substance: AMLODIPINE BESYLATE
     Dosage: UNK
  13. ZOLOFT [Concomitant]
     Active Substance: SERTRALINE HYDROCHLORIDE
     Dosage: UNK
     Dates: start: 201807
  14. TYLENOL ARTHRITIS PAIN [Concomitant]
     Active Substance: ACETAMINOPHEN
     Dosage: 1 DF, AS NECESSARY
     Route: 048
  15. COZAAR [Concomitant]
     Active Substance: LOSARTAN POTASSIUM
     Dosage: 50 MG, QD
     Route: 048
  16. XANAX [Concomitant]
     Active Substance: ALPRAZOLAM
     Dosage: 0.25 MG, TID
  17. ZINC. [Concomitant]
     Active Substance: ZINC
     Dosage: UNK
     Route: 048

REACTIONS (19)
  - Inappropriate antidiuretic hormone secretion [Unknown]
  - Blood pressure increased [Unknown]
  - Dehydration [Unknown]
  - Feeling jittery [Unknown]
  - Gait inability [Unknown]
  - Tachycardia [Unknown]
  - Fatigue [Unknown]
  - Pain in extremity [Unknown]
  - Anxiety [Unknown]
  - Dizziness [Unknown]
  - Neck pain [Unknown]
  - Decreased appetite [Unknown]
  - Weight decreased [Unknown]
  - Hyponatraemia [Unknown]
  - Malaise [Not Recovered/Not Resolved]
  - Influenza like illness [Not Recovered/Not Resolved]
  - Cataract operation [Unknown]
  - Asthenia [Unknown]
  - Arthralgia [Unknown]

NARRATIVE: CASE EVENT DATE: 2018
